FAERS Safety Report 5727637-1 (Version None)
Quarter: 2008Q2

REPORT INFORMATION
  Report Type: 
  Country: None (occurrence: None)
  Receive Date: 20080505
  Receipt Date: 20080429
  Transmission Date: 20081010
  Serious: Yes (Hospitalization, Other)
  Sender: FDA-Public Use
  Company Number: A0721400A

PATIENT
  Age: 4 Year
  Sex: Male
  Weight: 15 kg

DRUGS (3)
  1. LAMICTAL [Suspect]
     Dosage: 75MG TWICE PER DAY
     Route: 048
  2. ZONEGRAN [Suspect]
     Route: 048
     Dates: start: 20070501
  3. KEPPRA [Concomitant]
     Dosage: 1200MGD PER DAY
     Route: 048

REACTIONS (3)
  - IMMUNE SYSTEM DISORDER [None]
  - THROMBOCYTOPENIA [None]
  - VIRAL INFECTION [None]
